FAERS Safety Report 23970453 (Version 1)
Quarter: 2024Q2

REPORT INFORMATION
  Report Type: Spontaneous
  Country: US (occurrence: US)
  Receive Date: 20240613
  Receipt Date: 20240613
  Transmission Date: 20240716
  Serious: Yes (Hospitalization, Other)
  Sender: FDA-Public Use
  Company Number: US-BRISTOL-MYERS SQUIBB COMPANY-2024-094652

PATIENT
  Age: 82 Year
  Sex: Male
  Weight: 81.56 kg

DRUGS (1)
  1. LENALIDOMIDE [Suspect]
     Active Substance: LENALIDOMIDE
     Indication: Plasma cell myeloma
     Dosage: EVERY OTHER DAY FOR 21 DAYS, THEN 7 DAYS OFF
     Route: 048
     Dates: start: 20240311

REACTIONS (4)
  - Faecaloma [Recovering/Resolving]
  - Vitamin D deficiency [Recovering/Resolving]
  - Pneumonia aspiration [Recovering/Resolving]
  - Off label use [Unknown]

NARRATIVE: CASE EVENT DATE: 20240603
